FAERS Safety Report 7576745-1 (Version None)
Quarter: 2011Q2

REPORT INFORMATION
  Report Type: 
  Country: None (occurrence: None)
  Receive Date: 20110624
  Receipt Date: 20110624
  Transmission Date: 20111010
  Serious: Yes (Other)
  Sender: FDA-Public Use
  Company Number: None

PATIENT
  Age: 46 Year
  Sex: Female
  Weight: 93.441 kg

DRUGS (1)
  1. MELOXICAM [Suspect]
     Indication: FIBROMYALGIA
     Dosage: 1 DAILY PO
     Route: 048
     Dates: start: 20110429, end: 20110502

REACTIONS (5)
  - MOOD ALTERED [None]
  - PRURITUS [None]
  - URTICARIA [None]
  - OEDEMA PERIPHERAL [None]
  - RASH GENERALISED [None]
